FAERS Safety Report 20750704 (Version 1)
Quarter: 2022Q2

REPORT INFORMATION
  Report Type: Spontaneous
  Country: CN (occurrence: CN)
  Receive Date: 20220426
  Receipt Date: 20220426
  Transmission Date: 20220720
  Serious: Yes (Other)
  Sender: FDA-Public Use
  Company Number: CN-PFIZER INC-202200585180

PATIENT
  Age: 14 Year
  Sex: Male
  Weight: 41.5 kg

DRUGS (1)
  1. LINEZOLID [Suspect]
     Active Substance: LINEZOLID
     Indication: Osteomyelitis
     Dosage: 600 MG, 2X/DAY
     Dates: start: 20220328, end: 20220330

REACTIONS (3)
  - Seizure [Recovered/Resolved]
  - Tremor [Recovered/Resolved]
  - Off label use [Unknown]

NARRATIVE: CASE EVENT DATE: 20220328
